FAERS Safety Report 10172812 (Version 1)
Quarter: 2014Q2

REPORT INFORMATION
  Report Type: Spontaneous
  Country: VN (occurrence: VN)
  Receive Date: 20140515
  Receipt Date: 20140515
  Transmission Date: 20141212
  Serious: Yes (Death)
  Sender: FDA-Public Use
  Company Number: VN-ROCHE-1401367

PATIENT
  Sex: 0

DRUGS (1)
  1. MABTHERA [Suspect]
     Indication: NON-HODGKIN^S LYMPHOMA
     Dosage: FOR R-CHOP, R-ESHAP, R-GDP, R-ICE REGIMEN
     Route: 065

REACTIONS (1)
  - Death [Fatal]
